FAERS Safety Report 9897887 (Version 3)
Quarter: 2014Q1

REPORT INFORMATION
  Report Type: Report from Study
  Country: US (occurrence: US)
  Receive Date: 20140214
  Receipt Date: 20140307
  Transmission Date: 20141002
  Serious: Yes (Other)
  Sender: FDA-Public Use
  Company Number: US-SANOFI-AVENTIS-2013SA074494

PATIENT
  Age: 55 Year
  Sex: Female

DRUGS (4)
  1. AUBAGIO [Suspect]
     Indication: MULTIPLE SCLEROSIS
     Route: 048
     Dates: start: 20130714, end: 20130918
  2. AUBAGIO [Suspect]
     Indication: MULTIPLE SCLEROSIS
     Route: 048
     Dates: start: 20140104
  3. AUBAGIO [Suspect]
     Indication: MULTIPLE SCLEROSIS
     Route: 048
  4. METOPROLOL [Concomitant]

REACTIONS (15)
  - Tooth abscess [Recovering/Resolving]
  - Heart rate increased [Recovered/Resolved]
  - Temperature intolerance [Unknown]
  - Sunburn [Unknown]
  - Nasopharyngitis [Recovering/Resolving]
  - Heat exhaustion [Unknown]
  - Abdominal discomfort [Unknown]
  - Fatigue [Unknown]
  - Malaise [Recovering/Resolving]
  - Epigastric discomfort [Unknown]
  - Glossodynia [Unknown]
  - Blood glucose increased [Unknown]
  - Vomiting [Unknown]
  - Hypertension [Recovered/Resolved]
  - Headache [Unknown]
